FAERS Safety Report 5899124-1 (Version None)
Quarter: 2008Q3

REPORT INFORMATION
  Report Type: 
  Country: None (occurrence: None)
  Receive Date: 20080925
  Receipt Date: 20080909
  Transmission Date: 20090109
  Serious: No
  Sender: FDA-Public Use
  Company Number: US-B.I. PHARMACEUTICALS,INC./RIDGEFIELD-2008-BP-14276BP

PATIENT
  Sex: Female

DRUGS (9)
  1. MIRAPEX [Suspect]
     Indication: RESTLESS LEGS SYNDROME
     Dosage: .25MG
     Route: 048
  2. HYDROCHLOROTHIAZIDE [Concomitant]
     Indication: DIURETIC THERAPY
  3. ASPIRIN [Concomitant]
     Indication: PROMOTION OF PERIPHERAL CIRCULATION
  4. NEXIUM [Concomitant]
     Indication: GASTRIC PH DECREASED
  5. CYMBALTA [Concomitant]
     Indication: NEUROPATHY PERIPHERAL
     Dosage: 30MG
  6. ESTRADILE [Concomitant]
     Indication: HORMONE REPLACEMENT THERAPY
  7. AVAPRO [Concomitant]
     Indication: CARDIAC DISORDER
  8. PROVENTIL [Concomitant]
     Indication: MULTIPLE ALLERGIES
     Route: 055
  9. ASTELIN [Concomitant]
     Indication: MULTIPLE ALLERGIES
     Route: 045

REACTIONS (1)
  - THERAPEUTIC REACTION TIME DECREASED [None]
